FAERS Safety Report 8577265-8 (Version None)
Quarter: 2012Q3

REPORT INFORMATION
  Report Type: 
  Country: None (occurrence: None)
  Receive Date: 20120807
  Receipt Date: 20120601
  Transmission Date: 20120928
  Serious: No
  Sender: FDA-Public Use
  Company Number: US-COVIDIEN/TYCO HEALTHCARE/MALLINCKRODT-T201202460

PATIENT
  Sex: Female

DRUGS (3)
  1. HUMIRA [Concomitant]
     Indication: RHEUMATOID ARTHRITIS
     Dosage: UNK
     Dates: start: 20120501
  2. PENNSAID [Suspect]
     Indication: ARTHRALGIA
     Dosage: UNK
  3. HUMIRA [Concomitant]
     Dosage: WEEKLY INJECTIONS

REACTIONS (2)
  - NECK PAIN [None]
  - PAIN [None]
